FAERS Safety Report 9466215 (Version 1)
Quarter: 2013Q3

REPORT INFORMATION
  Report Type: Report from Study
  Country: CA (occurrence: CA)
  Receive Date: 20130820
  Receipt Date: 20130820
  Transmission Date: 20140515
  Serious: Yes (Hospitalization)
  Sender: FDA-Public Use
  Company Number: CA-ASTRAZENECA-2013SE63882

PATIENT
  Age: 50 Year
  Sex: 0

DRUGS (1)
  1. SYMBICORT TURBUHALER [Suspect]
     Indication: CHRONIC OBSTRUCTIVE PULMONARY DISEASE
     Route: 055

REACTIONS (3)
  - Dyspnoea [Unknown]
  - Cough [Unknown]
  - Drug ineffective [Unknown]
